FAERS Safety Report 4872997-7 (Version None)
Quarter: 2005Q4

REPORT INFORMATION
  Report Type: 
  Country: None (occurrence: None)
  Receive Date: 20051201
  Receipt Date: 20050713
  Transmission Date: 20060501
  Serious: No
  Sender: FDA-Public Use
  Company Number: 2005PV000358

PATIENT
  Age: 47 Year
  Sex: Female
  Weight: 139.2543 kg

DRUGS (7)
  1. BYETTA [Suspect]
     Indication: DIABETES MELLITUS NON-INSULIN-DEPENDENT
     Dosage: 5 MCG;BID;SC
     Route: 058
     Dates: start: 20050615
  2. ATENOLOL [Concomitant]
  3. PROTONIX [Concomitant]
  4. MOBIC [Concomitant]
  5. FUROSEMIDE [Concomitant]
  6. ENALAPRIL [Concomitant]
  7. GLUCOPHAGE [Concomitant]

REACTIONS (2)
  - BLOOD GLUCOSE DECREASED [None]
  - WEIGHT DECREASED [None]
